FAERS Safety Report 6607953-1 (Version None)
Quarter: 2010Q1

REPORT INFORMATION
  Report Type: 
  Country: None (occurrence: None)
  Receive Date: 20100222
  Receipt Date: 20100216
  Transmission Date: 20100710
  Serious: Yes (Hospitalization)
  Sender: FDA-Public Use
  Company Number: 2009SP011135

PATIENT
  Age: 47 Year
  Sex: Male

DRUGS (8)
  1. PEG-INTRON [Suspect]
     Indication: HEPATITIS C
     Dosage: 150 MCG;QW;IM;  105 MCG;QW;IM
     Route: 030
     Dates: end: 20090516
  2. PEG-INTRON [Suspect]
     Indication: HEPATITIS C
     Dosage: 150 MCG;QW;IM;  105 MCG;QW;IM
     Route: 030
     Dates: start: 20081029
  3. RIBAVIRIN [Suspect]
     Indication: HEPATITIS C
     Dosage: 1400 MG; QD; PO
     Route: 048
     Dates: start: 20081029, end: 20090519
  4. BLINDED SCH 503034 [Suspect]
     Indication: HEPATITIS C
     Dosage: 2400 MG; QD; PO
     Route: 048
     Dates: start: 20081201, end: 20090519
  5. AMLODIPINE BESYLATE [Concomitant]
  6. BENICAR HCT [Concomitant]
  7. PROCRIT [Concomitant]
  8. SULFAMETHOXAZOLE AND TRIMETHOPRIM [Concomitant]

REACTIONS (9)
  - ABDOMINAL PAIN LOWER [None]
  - INJECTION SITE INFECTION [None]
  - LYMPHADENOPATHY [None]
  - SCROTAL ABSCESS [None]
  - SCROTAL MASS [None]
  - SCROTAL PAIN [None]
  - SPERMATIC CORD DISORDER [None]
  - STAPHYLOCOCCAL ABSCESS [None]
  - WOUND INFECTION [None]
